FAERS Safety Report 6757952-4 (Version None)
Quarter: 2010Q2

REPORT INFORMATION
  Report Type: 
  Country: None (occurrence: None)
  Receive Date: 20100607
  Receipt Date: 20100531
  Transmission Date: 20101027
  Serious: Yes (Other)
  Sender: FDA-Public Use
  Company Number: CA-ASTRAZENECA-2010SE18695

PATIENT
  Age: 64 Year
  Sex: Female

DRUGS (3)
  1. SYMBICORT [Suspect]
     Route: 055
     Dates: start: 20070601
  2. SYMBICORT [Suspect]
     Route: 055
     Dates: start: 20100318
  3. SYMBICORT [Suspect]
     Route: 055

REACTIONS (2)
  - DRUG INEFFECTIVE [None]
  - LUNG DISORDER [None]
